FAERS Safety Report 6541656-7 (Version None)
Quarter: 2010Q1

REPORT INFORMATION
  Report Type: 
  Country: None (occurrence: None)
  Receive Date: 20100119
  Receipt Date: 20100108
  Transmission Date: 20100710
  Serious: Yes (Hospitalization, Other)
  Sender: FDA-Public Use
  Company Number: JP-NOVOPROD-302505

PATIENT
  Age: 63 Year
  Sex: Male

DRUGS (2)
  1. NOVOLIN R [Suspect]
     Indication: TYPE 2 DIABETES MELLITUS
     Dosage: 46 IU (28 IU IN THE MORNING + 18 IU IN THE EVENING)
     Route: 058
     Dates: start: 20060701, end: 20080101
  2. NOVORAPID 30 MIX CHU FLEXPEN [Suspect]
     Indication: TYPE 2 DIABETES MELLITUS
     Dosage: 20IU IN THE MORNINFG+ 14 IU IN THE EVENING.
     Route: 058
     Dates: start: 20080101

REACTIONS (5)
  - ANTI-INSULIN ANTIBODY [None]
  - BLOOD GLUCOSE ABNORMAL [None]
  - COGNITIVE DISORDER [None]
  - CONVULSION [None]
  - HYPOGLYCAEMIA [None]
